FAERS Safety Report 16932104 (Version 1)
Quarter: 2019Q4

REPORT INFORMATION
  Report Type: Report from Study
  Country: US (occurrence: US)
  Receive Date: 20191017
  Receipt Date: 20191017
  Transmission Date: 20200122
  Serious: Yes (Hospitalization, Other)
  Sender: FDA-Public Use
  Company Number: US-GILEAD-2019-0433538

PATIENT
  Age: 29 Year
  Sex: Female

DRUGS (9)
  1. SODIUM CHLORIDE. [Concomitant]
     Active Substance: SODIUM CHLORIDE
  2. SPIRIVA [Concomitant]
     Active Substance: TIOTROPIUM BROMIDE MONOHYDRATE
  3. ADVAIR HFA [Concomitant]
     Active Substance: FLUTICASONE PROPIONATE\SALMETEROL XINAFOATE
  4. AZTREONAM LYSINE [Suspect]
     Active Substance: AZTREONAM LYSINE
     Indication: CYSTIC FIBROSIS
     Dosage: 75 MG, TID 14 DAYS ON AND 14 DAYS OFF FOR 28 DAY CYCLE
     Route: 055
     Dates: start: 20140626
  5. BETHKIS [Concomitant]
     Active Substance: TOBRAMYCIN
  6. MONTELUKAST [Concomitant]
     Active Substance: MONTELUKAST SODIUM
  7. AZITHROMYCIN ANHYDROUS. [Concomitant]
     Active Substance: AZITHROMYCIN ANHYDROUS
  8. PULMOZYME [Concomitant]
     Active Substance: DORNASE ALFA
  9. VITAMIN A NOS [Concomitant]
     Active Substance: VITAMIN A

REACTIONS (2)
  - Cystic fibrosis respiratory infection suppression [Unknown]
  - Product dose omission [Unknown]

NARRATIVE: CASE EVENT DATE: 20191001
